FAERS Safety Report 6188987-0 (Version None)
Quarter: 2009Q2

REPORT INFORMATION
  Report Type: 
  Country: None (occurrence: None)
  Receive Date: 20090513
  Receipt Date: 20090501
  Transmission Date: 20091009
  Serious: Yes (Other)
  Sender: FDA-Public Use
  Company Number: CA-PFIZER INC-2008028988

PATIENT
  Age: 54 Year

DRUGS (4)
  1. CHAMPIX [Suspect]
     Dosage: 1 MG, 2X/DAY
     Route: 048
     Dates: start: 20070701, end: 20070930
  2. ATENOLOL [Concomitant]
     Dosage: 25 MG, 1X/DAY
  3. CALCIUM W/MAGNESIUM [Concomitant]
     Dosage: UNK
  4. VITAMIN D [Concomitant]
     Dosage: 1000 IU, ALTERNATE DAY

REACTIONS (4)
  - ARTHRALGIA [None]
  - DEPRESSION [None]
  - SUICIDAL IDEATION [None]
  - THROMBOPHLEBITIS [None]
